FAERS Safety Report 8030443-9 (Version None)
Quarter: 2012Q1

REPORT INFORMATION
  Report Type: 
  Country: None (occurrence: None)
  Receive Date: 20120109
  Receipt Date: 20120106
  Transmission Date: 20120608
  Serious: Yes (Death, Other)
  Sender: FDA-Public Use
  Company Number: PHHY2012FR001228

PATIENT
  Age: 85 Year
  Sex: Male

DRUGS (2)
  1. RASILEZ [Suspect]
     Dosage: 1 DF, QD
     Route: 048
  2. ANGIOTENSIN II ANTAGONISTS [Concomitant]

REACTIONS (2)
  - FALL [None]
  - DEATH [None]
